FAERS Safety Report 4364138-X (Version None)
Quarter: 2004Q2

REPORT INFORMATION
  Report Type: 
  Country: None (occurrence: None)
  Receive Date: 20040519
  Receipt Date: 20040429
  Transmission Date: 20050107
  Serious: Yes (Hospitalization)
  Sender: FDA-Public Use
  Company Number: 200412076BCC

PATIENT

DRUGS (5)
  1. ALEVE [Suspect]
     Dosage: ORAL
     Route: 048
     Dates: start: 20040426
  2. CENTRUM VITAMINS [Suspect]
     Dosage: ORAL
     Route: 048
     Dates: start: 20040426
  3. ACETAMINOPHEN [Suspect]
     Dosage: ORAL
     Route: 048
     Dates: start: 20040426
  4. IMODIUM [Suspect]
  5. WELLBUTRIN [Suspect]

REACTIONS (9)
  - ALANINE AMINOTRANSFERASE INCREASED [None]
  - ASPARTATE AMINOTRANSFERASE INCREASED [None]
  - BLOOD PRESSURE DIASTOLIC DECREASED [None]
  - LETHARGY [None]
  - MULTIPLE DRUG OVERDOSE [None]
  - NAUSEA [None]
  - PROTHROMBIN TIME PROLONGED [None]
  - SINUS TACHYCARDIA [None]
  - VOMITING [None]
